FAERS Safety Report 9490030 (Version 7)
Quarter: 2015Q2

REPORT INFORMATION
  Report Type: Report from Study
  Country: US (occurrence: US)
  Receive Date: 20130829
  Receipt Date: 20150401
  Transmission Date: 20150821
  Serious: Yes (Other)
  Sender: FDA-Public Use
  Company Number: US-ACTELION-A-US2013-87628

PATIENT
  Age: 73 Year
  Sex: Male

DRUGS (4)
  1. TRACLEER [Suspect]
     Active Substance: BOSENTAN\BOSENTAN MONOHYDRATE
     Indication: PULMONARY ARTERIAL HYPERTENSION
     Dosage: UNK
     Route: 048
  2. TRACLEER [Suspect]
     Active Substance: BOSENTAN\BOSENTAN MONOHYDRATE
     Dosage: UNK
     Route: 048
  3. CIALIS [Concomitant]
     Active Substance: TADALAFIL
  4. OXYGEN. [Concomitant]
     Active Substance: OXYGEN
     Dosage: 2-3.5 L/MIN

REACTIONS (9)
  - Mobility decreased [Unknown]
  - Chest discomfort [Unknown]
  - Weight decreased [Unknown]
  - Oxygen consumption increased [Unknown]
  - Chronic obstructive pulmonary disease [Unknown]
  - Terminal state [Unknown]
  - Depression [Unknown]
  - Dyspnoea [Unknown]
  - Malaise [Unknown]
